FAERS Safety Report 7701284-4 (Version None)
Quarter: 2011Q3

REPORT INFORMATION
  Report Type: 
  Country: None (occurrence: None)
  Receive Date: 20110822
  Receipt Date: 20110809
  Transmission Date: 20111222
  Serious: Yes (Other)
  Sender: FDA-Public Use
  Company Number: US-PERRIGO-11US006712

PATIENT
  Sex: Male
  Weight: 72.562 kg

DRUGS (1)
  1. DIPHENHYDRAMINE HCL [Suspect]
     Indication: PRODUCT USED FOR UNKNOWN INDICATION
     Dosage: 100 MG, SINGLE
     Route: 048
     Dates: start: 20110807, end: 20110807

REACTIONS (3)
  - INCORRECT DOSE ADMINISTERED [None]
  - HALLUCINATION [None]
  - POOR QUALITY SLEEP [None]
